FAERS Safety Report 16005982 (Version 2)
Quarter: 2020Q3

REPORT INFORMATION
  Report Type: Spontaneous
  Country: KR (occurrence: KR)
  Receive Date: 20190226
  Receipt Date: 20200921
  Transmission Date: 20201102
  Serious: Yes (Other)
  Sender: FDA-Public Use
  Company Number: KR-GLAXOSMITHKLINE-KR2019GSK032369

PATIENT
  Age: 42 Year
  Sex: Female

DRUGS (3)
  1. CHLORPHENAMINE [Suspect]
     Active Substance: CHLORPHENIRAMINE MALEATE
     Indication: PRODUCT USED FOR UNKNOWN INDICATION
     Dosage: UNK
  2. PHENIRAMINE (NON?PROPRIETARY) [Concomitant]
     Indication: ALLERGY PROPHYLAXIS
     Dosage: UNK
  3. NUCALA [Suspect]
     Active Substance: MEPOLIZUMAB
     Indication: ASTHMA
     Dosage: UNK

REACTIONS (10)
  - Injection site swelling [Recovered/Resolved]
  - Tremor [Unknown]
  - Dizziness [Recovered/Resolved]
  - Erythema [Recovered/Resolved]
  - Back pain [Unknown]
  - Fatigue [Unknown]
  - Seizure [Recovered/Resolved]
  - Injection site pruritus [Recovered/Resolved]
  - Muscle spasms [Unknown]
  - Blood pressure increased [Recovered/Resolved]

NARRATIVE: CASE EVENT DATE: 20190211
